FAERS Safety Report 22029015 (Version 1)
Quarter: 2023Q1

REPORT INFORMATION
  Report Type: Spontaneous
  Country: US (occurrence: US)
  Receive Date: 20230223
  Receipt Date: 20230223
  Transmission Date: 20230418
  Serious: No
  Sender: FDA-Public Use
  Company Number: US-TEVA-2023-US-2854504

PATIENT
  Sex: Female

DRUGS (3)
  1. AJOVY [Suspect]
     Active Substance: FREMANEZUMAB-VFRM
     Indication: Product used for unknown indication
     Dosage: 225/1.5 MG/ML
     Route: 058
     Dates: start: 202206
  2. AJOVY [Suspect]
     Active Substance: FREMANEZUMAB-VFRM
  3. INFLUENZA VIRUS VACCINE [Concomitant]
     Active Substance: INFLUENZA VIRUS VACCINE
     Indication: Product used for unknown indication

REACTIONS (5)
  - Underweight [Unknown]
  - Body mass index decreased [Unknown]
  - Injection site mass [Unknown]
  - Injection site pain [Unknown]
  - Wrong technique in product usage process [Unknown]
